FAERS Safety Report 6863931-9 (Version None)
Quarter: 2010Q3

REPORT INFORMATION
  Report Type: 
  Country: None (occurrence: None)
  Receive Date: 20100721
  Receipt Date: 20080313
  Transmission Date: 20110219
  Serious: No
  Sender: FDA-Public Use
  Company Number: US-PFIZER INC-2008023322

PATIENT
  Sex: Female
  Weight: 72.7 kg

DRUGS (7)
  1. CHANTIX [Suspect]
     Indication: SMOKING CESSATION THERAPY
     Dates: start: 20080308, end: 20080311
  2. FUROSEMIDE [Concomitant]
  3. ENALAPRIL MALEATE [Concomitant]
  4. ADVAIR DISKUS 100/50 [Concomitant]
  5. ALBUTEROL [Concomitant]
  6. SPIRIVA [Concomitant]
  7. ACTOS [Concomitant]

REACTIONS (3)
  - FATIGUE [None]
  - HEADACHE [None]
  - NAUSEA [None]
